FAERS Safety Report 8122618-5 (Version None)
Quarter: 2012Q1

REPORT INFORMATION
  Report Type: 
  Country: None (occurrence: None)
  Receive Date: 20120208
  Receipt Date: 20120130
  Transmission Date: 20120608
  Serious: Yes (Hospitalization, Other)
  Sender: FDA-Public Use
  Company Number: US-MERCK-1106USA01626

PATIENT
  Age: 56 Year
  Sex: Female
  Weight: 57 kg

DRUGS (6)
  1. FOSAMAX [Suspect]
     Indication: OSTEOPOROSIS
     Route: 048
     Dates: start: 19980101, end: 20080101
  2. FOSAMAX [Suspect]
     Indication: OSTEOPENIA
     Route: 048
     Dates: start: 19980101, end: 20080101
  3. CIPROFLOXACIN [Concomitant]
     Route: 065
     Dates: start: 19950101
  4. KLOR-CON [Concomitant]
     Indication: MINERAL SUPPLEMENTATION
     Route: 065
     Dates: start: 19800101
  5. TRICOR [Concomitant]
     Indication: BLOOD CHOLESTEROL INCREASED
     Route: 065
     Dates: start: 19950101
  6. VITAMINS (UNSPECIFIED) [Concomitant]
     Route: 065
     Dates: start: 19610101

REACTIONS (50)
  - BONE CYST [None]
  - MALIGNANT MELANOMA [None]
  - SPINAL OSTEOARTHRITIS [None]
  - HERPES SIMPLEX [None]
  - KIDNEY INFECTION [None]
  - ANXIETY [None]
  - ARTERIOSCLEROSIS [None]
  - LUMBAR SPINAL STENOSIS [None]
  - DRUG WITHDRAWAL SYNDROME [None]
  - HAEMORRHOIDS [None]
  - FATIGUE [None]
  - CHOLELITHIASIS [None]
  - ANAEMIA [None]
  - DEPRESSION [None]
  - NECK PAIN [None]
  - BURSITIS [None]
  - POSTMENOPAUSE [None]
  - OSTEONECROSIS [None]
  - BACK PAIN [None]
  - ABASIA [None]
  - UTERINE LEIOMYOMA [None]
  - SPINAL DISORDER [None]
  - INSOMNIA [None]
  - FEMUR FRACTURE [None]
  - GASTROINTESTINAL DISORDER [None]
  - DRUG HYPERSENSITIVITY [None]
  - HIATUS HERNIA [None]
  - DIARRHOEA [None]
  - HYPERLIPIDAEMIA [None]
  - INTESTINAL DILATATION [None]
  - NEUROPATHY PERIPHERAL [None]
  - STAPHYLOCOCCAL INFECTION [None]
  - EPICONDYLITIS [None]
  - LOW TURNOVER OSTEOPATHY [None]
  - LACUNAR INFARCTION [None]
  - DENTAL CARIES [None]
  - SPINAL COLUMN STENOSIS [None]
  - ARTHROPATHY [None]
  - BREAST CANCER [None]
  - HYPERTRIGLYCERIDAEMIA [None]
  - INTERVERTEBRAL DISC DEGENERATION [None]
  - OSTEOARTHRITIS [None]
  - INTERVERTEBRAL DISC PROTRUSION [None]
  - SKIN CANCER [None]
  - NAUSEA [None]
  - SPINAL COMPRESSION FRACTURE [None]
  - RIB FRACTURE [None]
  - FRACTURE NONUNION [None]
  - BLOOD DISORDER [None]
  - ARTHRITIS [None]
